FAERS Safety Report 24786485 (Version 1)
Quarter: 2024Q4

REPORT INFORMATION
  Report Type: Spontaneous
  Country: US (occurrence: US)
  Receive Date: 20241230
  Receipt Date: 20241230
  Transmission Date: 20250115
  Serious: No
  Sender: AIMMUNE
  Company Number: US-AIMMUNE THERAPEUTICS, INC.-2023AIMT00332

PATIENT
  Age: 7 Year
  Sex: Male
  Weight: 27.664 kg

DRUGS (7)
  1. PALFORZIA [Suspect]
     Active Substance: PEANUT
     Indication: Food allergy
     Dosage: IDE (0.5MG-6MG), ONCE
     Dates: start: 20220321, end: 20220321
  2. PALFORZIA [Suspect]
     Active Substance: PEANUT
     Dosage: UNK UNK, 1X/DAY
     Dates: start: 202203
  3. PALFORZIA [Suspect]
     Active Substance: PEANUT
     Dosage: UNK, ONCE, LAST DOSE PRIOR EVENT
     Dates: start: 202203, end: 202203
  4. PALFORZIA [Suspect]
     Active Substance: PEANUT
     Dosage: 1 MG, 1X/DAY, REDUCED DOSE
  5. AMOXICILLIN [Concomitant]
     Active Substance: AMOXICILLIN
     Indication: Product used for unknown indication
  6. AZELASTINE [Concomitant]
     Active Substance: AZELASTINE
     Indication: Seasonal allergy
  7. EPINEPHRINE [Concomitant]
     Active Substance: EPINEPHRINE
     Indication: Product used for unknown indication

REACTIONS (1)
  - Abdominal discomfort [Recovered/Resolved]

NARRATIVE: CASE EVENT DATE: 20220321
